FAERS Safety Report 15920679 (Version 1)
Quarter: 2019Q1

REPORT INFORMATION
  Report Type: Spontaneous
  Country: GB (occurrence: DE)
  Receive Date: 20190205
  Receipt Date: 20190205
  Transmission Date: 20190417
  Serious: Yes (Hospitalization)
  Sender: FDA-Public Use
  Company Number: DE-FRESENIUS KABI-FK201901185

PATIENT
  Age: 62 Year
  Sex: Male
  Weight: 80 kg

DRUGS (8)
  1. INSULIN GLARGINE [Concomitant]
     Active Substance: INSULIN GLARGINE
     Indication: TYPE 1 DIABETES MELLITUS
     Dosage: BASED ON BLOOD SUGAR
     Route: 058
  2. BISOPROLOL [Concomitant]
     Active Substance: BISOPROLOL
     Indication: ATRIAL FIBRILLATION
     Dosage: DAILY DOSE: 10 MG MILLIGRAM(S) EVERY DAYS
     Route: 048
     Dates: start: 2017
  3. AMPICILLIN SODIUM/SULBACTAM SODIUM [Concomitant]
     Indication: URINARY TRACT INFECTION
     Dosage: DAILY DOSE: 12 G GRAM(S) EVERY DAYS
     Route: 042
     Dates: start: 20190109, end: 20190112
  4. ACETYLSALICYLIC ACID [Concomitant]
     Active Substance: ASPIRIN
     Indication: CORONARY ARTERY DISEASE
     Route: 048
     Dates: start: 2017
  5. VANCOMYCIN (MANUFACTURER UNKNOWN) [Suspect]
     Active Substance: VANCOMYCIN
     Indication: STAPHYLOCOCCAL BACTERAEMIA
     Route: 041
     Dates: start: 20190110
  6. HYDROCHLOROTHIAZIDE/AMLODIPINE BESILATE/VALSARTAN [Concomitant]
     Indication: CARDIAC FAILURE
     Route: 048
     Dates: start: 2017
  7. BECLOMETASONE DIPROPIONATE/FORMOTEROL FUMARATE [Concomitant]
     Indication: CHRONIC OBSTRUCTIVE PULMONARY DISEASE
     Route: 048
     Dates: start: 2017
  8. APIXABAN [Concomitant]
     Active Substance: APIXABAN
     Indication: ATRIAL FIBRILLATION
     Dosage: DAILY DOSE: 5 MG MILLGRAM(S) EVERY DAYS
     Route: 048
     Dates: start: 2017

REACTIONS (4)
  - Angioedema [Recovered/Resolved]
  - Hypersensitivity [Recovered/Resolved]
  - Dyspnoea [Recovered/Resolved]
  - Bronchospasm [Recovered/Resolved]

NARRATIVE: CASE EVENT DATE: 20190110
